FAERS Safety Report 6406506-8 (Version None)
Quarter: 2009Q4

REPORT INFORMATION
  Report Type: 
  Country: None (occurrence: None)
  Receive Date: 20091014
  Receipt Date: 20091006
  Transmission Date: 20100525
  Serious: Yes (Other)
  Sender: FDA-Public Use
  Company Number: 2009US003711

PATIENT
  Age: 34 Year
  Sex: Female
  Weight: 59.9 kg

DRUGS (4)
  1. PROGRAF [Suspect]
     Indication: HEART TRANSPLANT
     Dosage: 6 MG, BID, ORAL
     Route: 048
  2. CELLCEPT [Concomitant]
  3. MULTIVITAMIN [Concomitant]
  4. AZATHIOPRINE [Concomitant]

REACTIONS (3)
  - ABORTION SPONTANEOUS [None]
  - DRUG EXPOSURE DURING PREGNANCY [None]
  - PREGNANCY [None]
